FAERS Safety Report 6903047-6 (Version None)
Quarter: 2010Q3

REPORT INFORMATION
  Report Type: 
  Country: None (occurrence: None)
  Receive Date: 20100803
  Receipt Date: 20080708
  Transmission Date: 20110219
  Serious: No
  Sender: FDA-Public Use
  Company Number: US-PFIZER INC-2008056797

PATIENT
  Sex: Female
  Weight: 68.2 kg

DRUGS (1)
  1. LYRICA [Suspect]
     Indication: BACK PAIN
     Dates: start: 20060101, end: 20080501

REACTIONS (1)
  - WITHDRAWAL SYNDROME [None]
